FAERS Safety Report 23553669 (Version 1)
Quarter: 2024Q1

REPORT INFORMATION
  Report Type: Spontaneous
  Country: CN (occurrence: CN)
  Receive Date: 20240222
  Receipt Date: 20240222
  Transmission Date: 20240409
  Serious: Yes (Hospitalization, Other)
  Sender: FDA-Public Use
  Company Number: CN-BRISTOL-MYERS SQUIBB COMPANY-2024-028851

PATIENT
  Age: 60 Year
  Sex: Female
  Weight: 50 kg

DRUGS (4)
  1. OPDIVO [Suspect]
     Active Substance: NIVOLUMAB
     Indication: Vulval cancer
     Dosage: DOSE: 200MG AND FREQ : QD D1-D5 DRUG USE-TIMES: 1 DRUG USE-DAYS: 1
     Route: 041
     Dates: start: 20240130, end: 20240130
  2. BEVACIZUMAB [Suspect]
     Active Substance: BEVACIZUMAB
     Indication: Vulval cancer
     Dates: start: 20240130, end: 20240130
  3. FLUOROURACIL [Suspect]
     Active Substance: FLUOROURACIL
     Indication: Vulval cancer
     Dates: start: 20240130, end: 20240203
  4. CISPLATIN [Suspect]
     Active Substance: CISPLATIN
     Indication: Vulval cancer
     Dosage: 30MG D1-D3 REGIMEN
     Dates: start: 20240130, end: 20240201

REACTIONS (2)
  - Myelosuppression [Recovered/Resolved]
  - Off label use [Unknown]

NARRATIVE: CASE EVENT DATE: 20240215
